FAERS Safety Report 18610692 (Version 1)
Quarter: 2020Q4

REPORT INFORMATION
  Report Type: Spontaneous
  Country: JP (occurrence: JP)
  Receive Date: 20201214
  Receipt Date: 20201214
  Transmission Date: 20210114
  Serious: Yes (Other)
  Sender: FDA-Public Use
  Company Number: JP-PFIZER INC-2020487751

PATIENT

DRUGS (1)
  1. RHEUMATREX [Suspect]
     Active Substance: METHOTREXATE SODIUM
     Dosage: UNK, 2X/WEEK (MORNING OF FRIDAY AND IN THE EVENING OF FRIDAY EVERY WEEK)
     Route: 048

REACTIONS (1)
  - Spinal stenosis [Unknown]
